FAERS Safety Report 24688723 (Version 3)
Quarter: 2024Q4

REPORT INFORMATION
  Report Type: Spontaneous
  Country: IL (occurrence: IL)
  Receive Date: 20241203
  Receipt Date: 20241227
  Transmission Date: 20250114
  Serious: Yes (Other)
  Sender: JOHNSON AND JOHNSON
  Company Number: IL-ABBVIE-5998352

PATIENT
  Age: 65 Year
  Sex: Male
  Weight: 75 kg

DRUGS (2)
  1. IBRUTINIB [Suspect]
     Active Substance: IBRUTINIB
     Indication: Chronic lymphocytic leukaemia
     Dosage: 420 MILLIGRAM?FREQUENCY TEXT: 1
     Route: 048
     Dates: start: 20241101, end: 20241103
  2. VENCLEXTA [Suspect]
     Active Substance: VENETOCLAX
     Indication: Chronic lymphocytic leukaemia
     Dosage: FORM STRENGTH: 400 MILLIGRAM
     Route: 048
     Dates: start: 20241101, end: 20241103

REACTIONS (9)
  - Tumour lysis syndrome [Recovered/Resolved]
  - Lymphadenopathy [Unknown]
  - Renal failure [Recovered/Resolved]
  - Blood creatinine abnormal [Recovered/Resolved]
  - Blood potassium abnormal [Recovered/Resolved]
  - Blood uric acid abnormal [Recovered/Resolved]
  - Blood phosphorus abnormal [Recovered/Resolved]
  - Product use issue [Recovered/Resolved]
  - Incorrect dose administered [Recovered/Resolved]

NARRATIVE: CASE EVENT DATE: 20240101
